FAERS Safety Report 20397881 (Version 2)
Quarter: 2022Q1

REPORT INFORMATION
  Report Type: Spontaneous
  Country: US (occurrence: US)
  Receive Date: 20220131
  Receipt Date: 20220201
  Transmission Date: 20220424
  Serious: No
  Sender: FDA-Public Use
  Company Number: US-ABBVIE-21K-163-3829936-00

PATIENT
  Age: 35 Year
  Sex: Female
  Weight: 58.112 kg

DRUGS (22)
  1. HUMIRA [Suspect]
     Active Substance: ADALIMUMAB
     Indication: Colitis ulcerative
     Route: 058
     Dates: start: 20210305
  2. MESALAMINE [Concomitant]
     Active Substance: MESALAMINE
     Indication: Colitis ulcerative
  3. PANTOPRAZOLE [Concomitant]
     Active Substance: PANTOPRAZOLE
     Indication: Gastrooesophageal reflux disease
  4. VITAMIN D3 [Concomitant]
     Active Substance: CHOLECALCIFEROL
     Indication: Antiviral prophylaxis
  5. VITAMIN D3 [Concomitant]
     Active Substance: CHOLECALCIFEROL
     Indication: COVID-19 prophylaxis
  6. VITAMIN D3 [Concomitant]
     Active Substance: CHOLECALCIFEROL
     Indication: Nutritional supplementation
  7. VITAMIN D3 [Concomitant]
     Active Substance: CHOLECALCIFEROL
     Indication: Nutritional supplementation
  8. MAGNESIUM [Concomitant]
     Active Substance: MAGNESIUM
     Indication: Antiviral prophylaxis
  9. MAGNESIUM [Concomitant]
     Active Substance: MAGNESIUM
     Indication: COVID-19 prophylaxis
  10. MAGNESIUM [Concomitant]
     Active Substance: MAGNESIUM
     Indication: Nutritional supplementation
  11. MAGNESIUM [Concomitant]
     Active Substance: MAGNESIUM
     Indication: Nutritional supplementation
  12. VITAMIN C [Concomitant]
     Active Substance: ASCORBIC ACID
     Indication: Antiviral prophylaxis
  13. VITAMIN C [Concomitant]
     Active Substance: ASCORBIC ACID
     Indication: COVID-19 prophylaxis
  14. VITAMIN C [Concomitant]
     Active Substance: ASCORBIC ACID
     Indication: Nutritional supplementation
  15. VITAMIN C [Concomitant]
     Active Substance: ASCORBIC ACID
     Indication: Nutritional supplementation
  16. HERBALS [Concomitant]
     Active Substance: HERBALS
     Indication: Anxiety
     Dosage: TINCTURE
  17. DIAZEPAM [Concomitant]
     Active Substance: DIAZEPAM
     Indication: Meniere^s disease
  18. DIAZEPAM [Concomitant]
     Active Substance: DIAZEPAM
     Indication: Dizziness
  19. PEPCID [Concomitant]
     Active Substance: FAMOTIDINE
     Indication: Gastrooesophageal reflux disease
  20. ALLEGRA [Concomitant]
     Active Substance: FEXOFENADINE HYDROCHLORIDE
     Indication: Seasonal allergy
  21. FLONASE [Concomitant]
     Active Substance: FLUTICASONE PROPIONATE
     Indication: Seasonal allergy
  22. AZELASTINE [Concomitant]
     Active Substance: AZELASTINE
     Indication: Product used for unknown indication

REACTIONS (5)
  - Wrong technique in product usage process [Recovered/Resolved]
  - Injection site urticaria [Recovered/Resolved]
  - Injection site bruising [Recovered/Resolved]
  - Injection site rash [Recovered/Resolved]
  - Injection site pruritus [Recovered/Resolved]

NARRATIVE: CASE EVENT DATE: 20210305
